FAERS Safety Report 19908094 (Version 1)
Quarter: 2021Q4

REPORT INFORMATION
  Report Type: Spontaneous
  Country: JP (occurrence: JP)
  Receive Date: 20211001
  Receipt Date: 20211001
  Transmission Date: 20220303
  Serious: Yes (Death, Other)
  Sender: FDA-Public Use
  Company Number: JP-JAZZ-2021-JP-018292

PATIENT
  Age: 8 Year
  Sex: Female

DRUGS (5)
  1. DEFITELIO [Suspect]
     Active Substance: DEFIBROTIDE SODIUM
     Indication: Product used for unknown indication
     Dosage: 25 MG/KG
     Route: 042
     Dates: start: 20210629, end: 20210826
  2. DEFITELIO [Suspect]
     Active Substance: DEFIBROTIDE SODIUM
     Dosage: 25 MG/KG
     Route: 042
     Dates: start: 20210903
  3. METHYLPREDNISOLONE SODIUM SUCCINATE [Concomitant]
     Active Substance: METHYLPREDNISOLONE SODIUM SUCCINATE
     Indication: Product used for unknown indication
     Dosage: UNK
     Dates: start: 20210715, end: 2021
  4. METHYLPREDNISOLONE SODIUM SUCCINATE [Concomitant]
     Active Substance: METHYLPREDNISOLONE SODIUM SUCCINATE
     Dosage: UNK
     Dates: start: 2021
  5. PLATELETS [Concomitant]
     Active Substance: HUMAN PLATELET, ALLOGENIC
     Indication: Product used for unknown indication
     Dosage: UNK
     Dates: start: 2021

REACTIONS (4)
  - Pleural effusion [Unknown]
  - Pulmonary oedema [Unknown]
  - Venoocclusive liver disease [Unknown]
  - Respiratory failure [Fatal]

NARRATIVE: CASE EVENT DATE: 20210903
